FAERS Safety Report 16808425 (Version 1)
Quarter: 2019Q3

REPORT INFORMATION
  Report Type: Spontaneous
  Country: US (occurrence: US)
  Receive Date: 20190916
  Receipt Date: 20190916
  Transmission Date: 20191005
  Serious: No
  Sender: FDA-Public Use
  Company Number: US-JNJFOC-20190915161

PATIENT
  Age: 38 Year
  Sex: Male
  Weight: 95.79 kg

DRUGS (1)
  1. MENS ROGAINE EXTRA STRENGTH [Suspect]
     Active Substance: MINOXIDIL
     Indication: ALOPECIA
     Dosage: UP TO THE LINE OF THE DROPPER
     Route: 061
     Dates: start: 20190907, end: 20190909

REACTIONS (4)
  - Underdose [Unknown]
  - Inappropriate schedule of product administration [Unknown]
  - Application site dryness [Recovering/Resolving]
  - Application site pruritus [Recovered/Resolved]

NARRATIVE: CASE EVENT DATE: 20190907
